FAERS Safety Report 7749700-6 (Version None)
Quarter: 2011Q3

REPORT INFORMATION
  Report Type: 
  Country: None (occurrence: None)
  Receive Date: 20110914
  Receipt Date: 20110906
  Transmission Date: 20111222
  Serious: Yes (Hospitalization)
  Sender: FDA-Public Use
  Company Number: FR-JNJFOC-20110903999

PATIENT
  Sex: Female

DRUGS (2)
  1. MICONAZOLE [Suspect]
     Route: 048
  2. MICONAZOLE [Suspect]
     Indication: ORAL CANDIDIASIS
     Route: 048
     Dates: start: 20110818, end: 20110818

REACTIONS (3)
  - VOMITING [None]
  - FACE OEDEMA [None]
  - DRUG PRESCRIBING ERROR [None]
